FAERS Safety Report 16045318 (Version 1)
Quarter: 2019Q1

REPORT INFORMATION
  Report Type: Spontaneous
  Country: SE (occurrence: SE)
  Receive Date: 20190307
  Receipt Date: 20190307
  Transmission Date: 20190418
  Serious: Yes (Hospitalization)
  Sender: FDA-Public Use
  Company Number: SE-TEVA-2019-SE-1020178

PATIENT
  Sex: Male

DRUGS (1)
  1. LOPERAMIDE [Suspect]
     Active Substance: LOPERAMIDE
     Dosage: 2018-01-29 OR 2018-01-30
     Route: 048
     Dates: start: 201801, end: 201801

REACTIONS (4)
  - Electrocardiogram QRS complex prolonged [Unknown]
  - Palpitations [Unknown]
  - Intentional overdose [Unknown]
  - Drug abuse [Unknown]

NARRATIVE: CASE EVENT DATE: 201801
